FAERS Safety Report 8557870-5 (Version None)
Quarter: 2012Q3

REPORT INFORMATION
  Report Type: 
  Country: None (occurrence: None)
  Receive Date: 20120801
  Receipt Date: 20120730
  Transmission Date: 20120928
  Serious: Yes (Life-Threatening, Hospitalization)
  Sender: FDA-Public Use
  Company Number: DE-GLAXOSMITHKLINE-D0072986A

PATIENT
  Sex: Male
  Weight: 75 kg

DRUGS (8)
  1. VALDOXAN [Concomitant]
     Dosage: 50MG PER DAY
     Route: 065
  2. HALDOL [Concomitant]
     Route: 065
  3. OXCARBAZEPINE [Concomitant]
     Dosage: 2100MG PER DAY
     Route: 048
  4. LAMOTRIGINE [Concomitant]
     Route: 048
  5. POTIGA [Suspect]
     Indication: EPILEPSY
     Dosage: 300MG TWICE PER DAY
     Route: 048
     Dates: start: 20110701, end: 20111008
  6. KEPPRA [Concomitant]
     Dosage: 500MG FIVE TIMES PER DAY
     Route: 065
  7. CHLORALHYDRAT [Concomitant]
     Route: 065
  8. AKINETON [Concomitant]
     Route: 065

REACTIONS (17)
  - PYREXIA [None]
  - DRUG TOLERANCE [None]
  - HYPOXIA [None]
  - CARDIOVERSION [None]
  - COGNITIVE DISORDER [None]
  - CARDIAC ARREST [None]
  - PNEUMONIA ASPIRATION [None]
  - MECHANICAL VENTILATION [None]
  - DRUG INEFFECTIVE [None]
  - WITHDRAWAL SYNDROME [None]
  - MUSCLE SPASMS [None]
  - JOINT HYPEREXTENSION [None]
  - VENTRICULAR FIBRILLATION [None]
  - PARTIAL SEIZURES [None]
  - CYANOSIS [None]
  - ELECTROCARDIOGRAM QT PROLONGED [None]
  - HYPERKINESIA [None]
